FAERS Safety Report 7089464-5 (Version None)
Quarter: 2010Q4

REPORT INFORMATION
  Report Type: 
  Country: None (occurrence: None)
  Receive Date: 20101108
  Receipt Date: 20101029
  Transmission Date: 20110411
  Serious: Yes (Death, Hospitalization, Disabling)
  Sender: FDA-Public Use
  Company Number: JP-GENZYME-THYM-1001964

PATIENT
  Age: 19 Year
  Sex: Female
  Weight: 52 kg

DRUGS (51)
  1. THYMOGLOBULIN [Suspect]
     Indication: ACUTE GRAFT VERSUS HOST DISEASE
     Dosage: 65 MG, QD
     Route: 042
     Dates: start: 20100428, end: 20100428
  2. ACETAMINOPHEN [Concomitant]
     Indication: PREMEDICATION
     Dosage: UNK
     Dates: start: 20100428, end: 20100429
  3. SERTRALINE HYDROCHLORIDE [Concomitant]
     Indication: INSOMNIA
     Dosage: UNK
     Dates: start: 20090923, end: 20100505
  4. ETIZOLAM [Concomitant]
     Indication: INSOMNIA
     Dosage: UNK
     Dates: start: 20091104, end: 20100813
  5. BACTRIM [Concomitant]
     Indication: INFECTION PROPHYLAXIS
     Dosage: UNK
     Dates: start: 20090506, end: 20100802
  6. URSODIOL [Concomitant]
     Indication: HEPATIC FUNCTION ABNORMAL
     Dosage: UNK
     Dates: start: 20090101, end: 20100813
  7. BROTIZOLAM [Concomitant]
     Indication: INSOMNIA
     Dosage: UNK
     Dates: start: 20090101, end: 20100728
  8. LANSOPRAZOLE [Concomitant]
     Dosage: UNK
     Dates: start: 20100429, end: 20100813
  9. FLUNITRAZEPAM [Concomitant]
     Indication: INSOMNIA
     Dosage: UNK
     Dates: start: 20091028, end: 20100728
  10. VORICONAZOLE [Concomitant]
     Indication: ANTIFUNGAL PROPHYLAXIS
     Dosage: UNK
     Dates: start: 20100407, end: 20100811
  11. VORICONAZOLE [Concomitant]
     Indication: FUNGAL INFECTION
     Dosage: UNK
     Dates: start: 20100816, end: 20100905
  12. VALACYCLOVIR [Concomitant]
     Indication: HERPES VIRUS INFECTION
     Dosage: UNK
     Dates: start: 20100414, end: 20100430
  13. AMLODIPINE BESYLATE [Concomitant]
     Indication: BLOOD PRESSURE INCREASED
     Dosage: UNK
     Dates: start: 20100421, end: 20100730
  14. TACROLIMUS [Concomitant]
     Indication: PROPHYLAXIS AGAINST GRAFT VERSUS HOST DISEASE
     Dosage: UNK
     Dates: start: 20100413, end: 20100801
  15. TACROLIMUS [Concomitant]
     Indication: GRAFT VERSUS HOST DISEASE
     Dosage: UNK
     Dates: start: 20100816, end: 20100829
  16. MYCOPHENOLATE MOFETIL [Concomitant]
     Indication: PROPHYLAXIS AGAINST GRAFT VERSUS HOST DISEASE
     Dosage: UNK
     Dates: start: 20100416, end: 20100725
  17. MIRTAZAPINE [Concomitant]
     Indication: ANTIDEPRESSANT THERAPY
     Dosage: UNK
     Dates: start: 20100506, end: 20100510
  18. METHYLPREDNISOLONE [Concomitant]
     Indication: ANTIDEPRESSANT THERAPY
     Dosage: UNK
     Dates: start: 20100506, end: 20100510
  19. LORAZEPAM [Concomitant]
     Indication: ANTIDEPRESSANT THERAPY
     Dosage: UNK
     Dates: start: 20100506, end: 20100728
  20. EPINASTINE HYDROCHLORIDE [Concomitant]
     Indication: GRAFT VERSUS HOST DISEASE
     Dosage: UNK
     Dates: start: 20100427, end: 20100511
  21. MAGNESIUM OXIDE [Concomitant]
     Indication: CONSTIPATION
     Dosage: UNK
     Dates: start: 20100516, end: 20100813
  22. ALFACALCIDOL [Concomitant]
     Indication: RENAL IMPAIRMENT
     Dosage: UNK
     Dates: start: 20090610, end: 20100801
  23. POTASSIUM CHLORIDE [Concomitant]
     Indication: ELECTROLYTE SUBSTITUTION THERAPY
     Dosage: UNK
     Dates: start: 20100616, end: 20100711
  24. SENNOSIDE [Concomitant]
     Indication: CONSTIPATION
     Dosage: UNK
     Dates: start: 20100609, end: 20100813
  25. PREDNISOLONE [Concomitant]
     Indication: GRAFT VERSUS HOST DISEASE
     Dosage: UNK
     Dates: start: 20100628, end: 20100805
  26. INSULIN HUMAN [Concomitant]
     Indication: DIABETES MELLITUS
     Dosage: UNK
     Dates: start: 20100322, end: 20100716
  27. INSULIN LISPRO [Concomitant]
     Indication: DIABETES MELLITUS
     Dosage: UNK
     Dates: start: 20100503, end: 20100707
  28. INSULIN DETEMIR [Concomitant]
     Indication: DIABETES MELLITUS
     Dosage: UNK
     Dates: start: 20100524, end: 20100524
  29. CEFEPIME HYDROCHLORIDE [Concomitant]
     Indication: BACTERIAL INFECTION
     Dosage: UNK
     Dates: start: 20100510, end: 20100604
  30. VANCOMYCIN HYDROCHLORIDE [Concomitant]
     Indication: BACTERIAL INFECTION
     Dosage: UNK
     Dates: start: 20100512, end: 20100604
  31. LENOGRASTIM [Concomitant]
     Dosage: UNK
     Dates: start: 20100604, end: 20100618
  32. FOSCARNET SODIUM [Concomitant]
     Indication: CYTOMEGALOVIRUS INFECTION
     Dosage: UNK
     Dates: start: 20100609, end: 20100629
  33. MEROPENEM [Concomitant]
     Indication: INFECTION
     Dosage: UNK
     Dates: start: 20100707, end: 20100906
  34. MINOCYCLINE HYDROCHLORIDE [Concomitant]
     Indication: INFECTION
     Dosage: UNK
     Dates: start: 20100801, end: 20100902
  35. FILGRASTIM [Concomitant]
     Indication: INFECTION
     Dosage: UNK
     Dates: start: 20100724, end: 20100906
  36. PHENOBARBITAL [Concomitant]
     Indication: ANTIDEPRESSANT THERAPY
     Dosage: UNK
     Dates: start: 20100816, end: 20100825
  37. GANCICLOVIR [Concomitant]
     Indication: CYTOMEGALOVIRUS INFECTION
     Dosage: UNK
     Dates: start: 20100428, end: 20100507
  38. PREDNISOLONE SODIUM SUCCINATE INJ [Concomitant]
     Indication: GRAFT VERSUS HOST DISEASE
     Dosage: UNK
     Dates: start: 20100805, end: 20100902
  39. PROPOFOL [Concomitant]
     Indication: SEDATION
     Dosage: UNK
     Dates: start: 20100903, end: 20100905
  40. CATAPLASMATA [Concomitant]
     Indication: GRAFT VERSUS HOST DISEASE
     Dosage: UNK
     Dates: start: 20100430, end: 20100430
  41. VITAMIN A [Concomitant]
     Indication: GRAFT VERSUS HOST DISEASE
     Dosage: UNK
     Dates: start: 20100430
  42. TOCOPHEROL-VITAMIN D [Concomitant]
     Indication: GRAFT VERSUS HOST DISEASE
     Dosage: UNK
     Dates: start: 20100430
  43. CLOBETASOL PROPIONATE [Concomitant]
     Indication: GRAFT VERSUS HOST DISEASE
     Dosage: UNK
     Dates: start: 20100428
  44. WHITE PETROLEUM [Concomitant]
     Indication: GRAFT VERSUS HOST DISEASE
     Dosage: UNK
     Dates: start: 20100430
  45. AZULENE [Concomitant]
     Indication: GRAFT VERSUS HOST DISEASE
     Dosage: UNK
     Dates: start: 20100430
  46. TRIAMCINOLONE ACETONIDE [Concomitant]
     Indication: GRAFT VERSUS HOST DISEASE
     Dosage: UNK
     Dates: start: 20100430
  47. VIDARABINE [Concomitant]
     Indication: GRAFT VERSUS HOST DISEASE
     Dosage: UNK
     Dates: start: 20100430
  48. HEPARIN [Concomitant]
     Indication: GRAFT VERSUS HOST DISEASE
     Dosage: UNK
     Dates: start: 20100430
  49. MOMETASONE FUROATE [Concomitant]
     Indication: GRAFT VERSUS HOST DISEASE
     Dosage: UNK
     Dates: start: 20100430
  50. DIPHENHYDRAMINE HCL [Concomitant]
     Indication: GRAFT VERSUS HOST DISEASE
     Dosage: UNK
     Dates: start: 20100430
  51. HYDROCORTISONE BUTYRATE [Concomitant]
     Indication: GRAFT VERSUS HOST DISEASE
     Dosage: UNK
     Dates: start: 20100501

REACTIONS (10)
  - BRAIN ABSCESS [None]
  - CYSTITIS HAEMORRHAGIC [None]
  - CYTOMEGALOVIRUS TEST POSITIVE [None]
  - DYSPNOEA [None]
  - FLUID RETENTION [None]
  - INFECTION [None]
  - PANCYTOPENIA [None]
  - PNEUMONIA [None]
  - RESPIRATORY FAILURE [None]
  - TACHYCARDIA [None]
